FAERS Safety Report 19955950 (Version 3)
Quarter: 2021Q4

REPORT INFORMATION
  Report Type: Spontaneous
  Country: US (occurrence: US)
  Receive Date: 20211014
  Receipt Date: 20211122
  Transmission Date: 20220303
  Serious: Yes (Other)
  Sender: FDA-Public Use
  Company Number: US-GLAXOSMITHKLINE-US2021AMR210324

PATIENT
  Sex: Female

DRUGS (3)
  1. ZEJULA [Suspect]
     Active Substance: NIRAPARIB
     Indication: Ovarian cancer
     Dosage: 100 MG, QD
     Dates: start: 20210401
  2. LOSARTAN [Concomitant]
     Active Substance: LOSARTAN
     Indication: Hypertension
     Dosage: 100 MG, TID
  3. PREGABALIN [Concomitant]
     Active Substance: PREGABALIN
     Indication: Nerve injury
     Dosage: 100 MG, TID

REACTIONS (6)
  - Recurrent cancer [Not Recovered/Not Resolved]
  - Taste disorder [Unknown]
  - Weight increased [Unknown]
  - Tumour marker increased [Unknown]
  - Product dose omission issue [Unknown]
  - Off label use [Unknown]
